FAERS Safety Report 8024394-3 (Version None)
Quarter: 2012Q1

REPORT INFORMATION
  Report Type: 
  Country: None (occurrence: None)
  Receive Date: 20120105
  Receipt Date: 20120105
  Transmission Date: 20120608
  Serious: No
  Sender: FDA-Public Use
  Company Number: None

PATIENT
  Age: 83 Year
  Sex: Male
  Weight: 63.502 kg

DRUGS (1)
  1. WARFARIN SODIUM [Suspect]
     Indication: ATRIAL FIBRILLATION
     Dosage: 3 MG
     Route: 048
     Dates: start: 20110103, end: 20110104

REACTIONS (6)
  - FATIGUE [None]
  - SOMNOLENCE [None]
  - PALLOR [None]
  - FLUSHING [None]
  - CHILLS [None]
  - GAIT DISTURBANCE [None]
